FAERS Safety Report 20430427 (Version 1)
Quarter: 2022Q1

REPORT INFORMATION
  Report Type: Report from Study
  Country: FR (occurrence: FR)
  Receive Date: 20220204
  Receipt Date: 20220204
  Transmission Date: 20220423
  Serious: Yes (Hospitalization)
  Sender: FDA-Public Use
  Company Number: FR-SERVIER-S20007781

PATIENT

DRUGS (4)
  1. PEGASPARGASE [Suspect]
     Active Substance: PEGASPARGASE
     Indication: Acute lymphocytic leukaemia
     Dosage: 1625 IU
     Route: 042
     Dates: start: 20180611, end: 20180611
  2. VINCRISTINE SULFATE [Suspect]
     Active Substance: VINCRISTINE SULFATE
     Indication: Acute lymphocytic leukaemia
     Dosage: 1 MG
     Route: 042
     Dates: start: 20180607, end: 20180628
  3. TN UNSEPCIFIED [Concomitant]
     Indication: Acute lymphocytic leukaemia
     Dosage: 39 MG
     Route: 048
     Dates: start: 20180531, end: 20180606
  4. TN UNSEPCIFIED [Concomitant]
     Indication: Acute lymphocytic leukaemia
     Dosage: 4 MG
     Route: 048
     Dates: start: 20180607, end: 20180628

REACTIONS (1)
  - Escherichia sepsis [Recovered/Resolved]

NARRATIVE: CASE EVENT DATE: 20180701
